FAERS Safety Report 6180679-7 (Version None)
Quarter: 2009Q2

REPORT INFORMATION
  Report Type: 
  Country: None (occurrence: None)
  Receive Date: 20090506
  Receipt Date: 20090422
  Transmission Date: 20091009
  Serious: Yes (Life-Threatening, Hospitalization)
  Sender: FDA-Public Use
  Company Number: US-ROCHE-491617

PATIENT
  Sex: Male
  Weight: 87.5 kg

DRUGS (12)
  1. CAPECITABINE [Suspect]
     Dosage: DAYS 1 - 15 OF A THREE WEEK CYCLE.
     Route: 048
     Dates: start: 20070221
  2. CAPECITABINE [Suspect]
     Dosage: DAYS 1 - 15 OF A THREE WEEK CYCLE.
     Route: 048
     Dates: start: 20070416
  3. BEVACIZUMAB [Suspect]
     Dosage: ON DAY ONE OF A THREE WEEK CYCLE.
     Route: 042
     Dates: start: 20070221
  4. BEVACIZUMAB [Suspect]
     Dosage: ON DAY ONE OF A THREE WEEK CYCLE.
     Route: 042
     Dates: start: 20070416
  5. OXALIPLATIN [Suspect]
     Dosage: ON DAY ONE OF A THREE WEEK CYCLE.
     Route: 042
     Dates: start: 20070221
  6. OXALIPLATIN [Suspect]
     Dosage: ON DAY ONE OF A THREE WEEK CYCLE.
     Route: 042
     Dates: start: 20070416
  7. NEXIUM [Concomitant]
     Dates: start: 20070207
  8. IMODIUM [Concomitant]
     Dosage: 2MG WAS GIVEN AS PER NEEDED FROM 29 MARCH 2007 TO 30 MARCH 2007.
     Dates: start: 20070326
  9. SODIUM CHLORIDE [Concomitant]
     Dates: start: 20070330, end: 20070330
  10. SANDOSTATIN [Concomitant]
     Dates: start: 20070328, end: 20070403
  11. POTASSIUM PHOSPHATES [Concomitant]
     Dates: start: 20070329, end: 20070402
  12. POTASSIUM CL [Concomitant]
     Dates: start: 20070330, end: 20070402

REACTIONS (2)
  - CAECITIS [None]
  - DIARRHOEA [None]
